FAERS Safety Report 6863538-3 (Version None)
Quarter: 2010Q3

REPORT INFORMATION
  Report Type: 
  Country: None (occurrence: None)
  Receive Date: 20100721
  Receipt Date: 20080305
  Transmission Date: 20110219
  Serious: No
  Sender: FDA-Public Use
  Company Number: US-PFIZER INC-2008022467

PATIENT
  Sex: Male

DRUGS (1)
  1. CHANTIX [Suspect]
     Indication: SMOKING CESSATION THERAPY
     Dates: start: 20080227

REACTIONS (4)
  - ABNORMAL DREAMS [None]
  - COUGH [None]
  - NASOPHARYNGITIS [None]
  - POOR QUALITY SLEEP [None]
